FAERS Safety Report 4527163-1 (Version None)
Quarter: 2004Q4

REPORT INFORMATION
  Report Type: 
  Country: None (occurrence: None)
  Receive Date: 20041126
  Receipt Date: 20040518
  Transmission Date: 20050328
  Serious: Yes (Other)
  Sender: FDA-Public Use
  Company Number: 2004211714US

PATIENT
  Age: 73 Year
  Sex: Female
  Weight: 54.4 kg

DRUGS (4)
  1. ZYVOX [Suspect]
     Indication: LUNG INFECTION
     Dates: start: 20040205, end: 20040213
  2. RIFAMPICIN [Concomitant]
  3. CARDIZEM [Concomitant]
  4. LAMPRENE [Concomitant]

REACTIONS (1)
  - ANAEMIA [None]
